FAERS Safety Report 25490601 (Version 1)
Quarter: 2025Q2

REPORT INFORMATION
  Report Type: Spontaneous
  Country: US (occurrence: US)
  Receive Date: 20250628
  Receipt Date: 20250628
  Transmission Date: 20250717
  Serious: No
  Sender: UPSHER SMITH LABORATORIES
  Company Number: US-UPSHER-SMITH LABORATORIES, LLC-20240800084

PATIENT
  Sex: Female

DRUGS (4)
  1. VIGADRONE [Suspect]
     Active Substance: VIGABATRIN
     Indication: Infantile spasms
     Route: 048
     Dates: start: 20240815
  2. VIGADRONE [Suspect]
     Active Substance: VIGABATRIN
     Route: 048
     Dates: start: 20240815
  3. VIGADRONE [Suspect]
     Active Substance: VIGABATRIN
     Route: 048
     Dates: start: 20240815
  4. PREDNISOLONE [Suspect]
     Active Substance: PREDNISOLONE
     Indication: Product used for unknown indication
     Route: 065

REACTIONS (8)
  - Throat irritation [Unknown]
  - Infantile spitting up [Unknown]
  - Selective eating disorder [Not Recovered/Not Resolved]
  - Retching [Unknown]
  - Fatigue [Unknown]
  - Swelling [Unknown]
  - Tremor [Unknown]
  - Sleep disorder [Not Recovered/Not Resolved]

NARRATIVE: CASE EVENT DATE: 20240101
